FAERS Safety Report 6928931-9 (Version None)
Quarter: 2010Q3

REPORT INFORMATION
  Report Type: 
  Country: None (occurrence: None)
  Receive Date: 20100817
  Receipt Date: 20100806
  Transmission Date: 20110219
  Serious: Yes (Death)
  Sender: FDA-Public Use
  Company Number: BR-PFIZER INC-2010099167

PATIENT
  Age: 57 Year
  Sex: Male

DRUGS (1)
  1. VIAGRA [Suspect]
     Dosage: 50 MG, 1X/DAY
     Route: 048
     Dates: start: 20080318

REACTIONS (1)
  - DEATH [None]
